FAERS Safety Report 15522283 (Version 1)
Quarter: 2018Q4

REPORT INFORMATION
  Report Type: Report from Study
  Country: US (occurrence: US)
  Receive Date: 20181017
  Receipt Date: 20181017
  Transmission Date: 20190205
  Serious: No
  Sender: FDA-Public Use
  Company Number: US-AMGEN-USASL2018109951

PATIENT
  Sex: Female

DRUGS (1)
  1. REPATHA [Suspect]
     Active Substance: EVOLOCUMAB
     Indication: TYPE IIA HYPERLIPIDAEMIA
     Dosage: 420 MG, QMO
     Route: 065

REACTIONS (6)
  - Injection site erythema [Unknown]
  - Peripheral swelling [Unknown]
  - Nausea [Unknown]
  - Pain in extremity [Unknown]
  - Injection site oedema [Recovered/Resolved]
  - Dizziness [Unknown]
